FAERS Safety Report 24264400 (Version 6)
Quarter: 2025Q3

REPORT INFORMATION
  Report Type: Spontaneous
  Country: CH (occurrence: CH)
  Receive Date: 20240829
  Receipt Date: 20250711
  Transmission Date: 20251021
  Serious: Yes (Other)
  Sender: SANDOZ
  Company Number: CH-002147023-NVSC2022CH210768

PATIENT
  Age: 54 Year
  Sex: Female

DRUGS (8)
  1. ANASTROZOLE [Suspect]
     Active Substance: ANASTROZOLE
     Indication: Breast cancer
     Dosage: 1 MG, QD  (1-0-0-0)
     Route: 048
     Dates: start: 20211215
  2. KISQALI [Suspect]
     Active Substance: RIBOCICLIB SUCCINATE
     Indication: Hormone receptor positive HER2 negative breast cancer
     Dosage: 200 MG, QD (1-0-0-0)
     Route: 048
     Dates: end: 20220524
  3. KISQALI [Suspect]
     Active Substance: RIBOCICLIB SUCCINATE
     Dosage: 200 MG, QD 3WEEKS ON, 1 WEEK OFF
     Route: 048
  4. KISQALI [Suspect]
     Active Substance: RIBOCICLIB SUCCINATE
     Dosage: 400 MG, QD
     Route: 048
     Dates: end: 20220301
  5. KISQALI [Suspect]
     Active Substance: RIBOCICLIB SUCCINATE
     Dosage: 400 MG, QD
     Route: 048
     Dates: end: 20220329
  6. KISQALI [Suspect]
     Active Substance: RIBOCICLIB SUCCINATE
     Dosage: 400 MG, QD (3 WEEKS ON, 1 WEEK OFF)
     Route: 048
  7. KISQALI [Suspect]
     Active Substance: RIBOCICLIB SUCCINATE
     Route: 048
     Dates: end: 20220201
  8. KISQALI [Suspect]
     Active Substance: RIBOCICLIB SUCCINATE
     Dosage: 600 MG, QD (3WEEKS ON, 1 WEEK OFF)
     Route: 048

REACTIONS (27)
  - Leukopenia [Recovered/Resolved]
  - Neutrophil count decreased [Recovered/Resolved]
  - Neutrophil count decreased [Recovered/Resolved]
  - White blood cell count decreased [Recovered/Resolved]
  - Dry skin [Recovered/Resolved]
  - Haematuria [Recovered/Resolved]
  - Abdominal pain lower [Recovered/Resolved]
  - Pelvic pain [Recovered/Resolved]
  - Abdominal pain lower [Recovered/Resolved]
  - Upper respiratory tract infection [Recovered/Resolved]
  - Upper respiratory tract infection [Recovered/Resolved]
  - Pain in jaw [Recovered/Resolved]
  - Upper respiratory tract infection [Recovered/Resolved]
  - Peripheral sensory neuropathy [Recovered/Resolved]
  - Influenza [Recovered/Resolved]
  - Pain in extremity [Recovered/Resolved]
  - Dysgeusia [Recovered/Resolved]
  - Mucosal inflammation [Recovered/Resolved]
  - Swelling [Recovered/Resolved]
  - Stomatitis [Recovered/Resolved]
  - Pyrexia [Recovered/Resolved]
  - Headache [Recovered/Resolved]
  - Fatigue [Not Recovered/Not Resolved]
  - Somnolence [Recovered/Resolved]
  - Nausea [Recovered/Resolved]
  - Hot flush [Not Recovered/Not Resolved]
  - Joint stiffness [Not Recovered/Not Resolved]

NARRATIVE: CASE EVENT DATE: 20220101
